FAERS Safety Report 7224566-1 (Version None)
Quarter: 2011Q1

REPORT INFORMATION
  Report Type: 
  Country: None (occurrence: None)
  Receive Date: 20110106
  Receipt Date: 20110106
  Transmission Date: 20110831
  Serious: Yes (Hospitalization)
  Sender: FDA-Public Use
  Company Number: None

PATIENT
  Age: 80 Year
  Sex: Female
  Weight: 63.6 kg

DRUGS (13)
  1. CENTRUM SILVER [Concomitant]
  2. FERROUS SULFATE TAB [Concomitant]
  3. HYDRALAZINE [Concomitant]
  4. ZEMPLAR [Concomitant]
  5. FLUOXETINE [Concomitant]
  6. DETROL LA [Concomitant]
  7. LOSARTAN POTASSIUM [Concomitant]
  8. VIT D [Concomitant]
  9. PLAVIX [Suspect]
     Indication: CEREBROVASCULAR ACCIDENT
     Dosage: 75MG DAILY PO
     Route: 048
  10. CLONIDINE [Concomitant]
  11. FELODIPINE [Concomitant]
  12. FUROSEMIDE [Concomitant]
  13. FAMOTIDINE [Concomitant]

REACTIONS (7)
  - PEPTIC ULCER [None]
  - GASTROINTESTINAL HAEMORRHAGE [None]
  - ANAEMIA [None]
  - ULCER [None]
  - HAEMORRHAGIC ANAEMIA [None]
  - DIVERTICULUM [None]
  - RENAL FAILURE CHRONIC [None]
